FAERS Safety Report 23514430 (Version 2)
Quarter: 2024Q1

REPORT INFORMATION
  Report Type: Spontaneous
  Country: US (occurrence: US)
  Receive Date: 20240212
  Receipt Date: 20240215
  Transmission Date: 20240409
  Serious: Yes (Hospitalization, Other)
  Sender: FDA-Public Use
  Company Number: US-BRISTOL-MYERS SQUIBB COMPANY-2024-022067

PATIENT
  Age: 53 Year
  Sex: Female
  Weight: 143.4 kg

DRUGS (2)
  1. APIXABAN [Suspect]
     Active Substance: APIXABAN
     Indication: Thrombosis prophylaxis
     Dates: start: 202210, end: 202310
  2. APIXABAN [Suspect]
     Active Substance: APIXABAN
     Dates: start: 202310

REACTIONS (5)
  - Gastrointestinal haemorrhage [Unknown]
  - Treatment noncompliance [Unknown]
  - Calciphylaxis [Unknown]
  - End stage renal disease [Unknown]
  - Off label use [Unknown]
